FAERS Safety Report 6385426-1 (Version None)
Quarter: 2009Q4

REPORT INFORMATION
  Report Type: 
  Country: None (occurrence: None)
  Receive Date: 20091002
  Receipt Date: 20080829
  Transmission Date: 20100525
  Serious: No
  Sender: FDA-Public Use
  Company Number: US-ASTRAZENECA-2008UW17905

PATIENT
  Age: 63 Year
  Sex: Female

DRUGS (5)
  1. ARIMIDEX [Suspect]
     Indication: BREAST CANCER
     Route: 048
     Dates: start: 20080501
  2. HERCEPTIN [Concomitant]
  3. COREG [Concomitant]
  4. LYRICA [Concomitant]
  5. LISINOPRIL [Concomitant]

REACTIONS (3)
  - ARTHRALGIA [None]
  - PAIN IN EXTREMITY [None]
  - TRIGGER FINGER [None]
